FAERS Safety Report 6308572 (Version 32)
Quarter: 2014Q1

REPORT INFORMATION
  Report Type: Spontaneous
  Country: US (occurrence: US)
  Receive Date: 20070510
  Receipt Date: 20140326
  Transmission Date: 20141002
  Serious: Yes (Death, Other)
  Sender: FDA-Public Use
  Company Number: PHEH2007US06794

PATIENT
  Age: 53 Year
  Sex: Female
  Weight: 92.97 kg

DRUGS (51)
  1. ZOMETA [Suspect]
     Indication: METASTASES TO BONE
     Dosage: 4 MG, UNK
     Dates: start: 20020304, end: 200409
  2. ZOMETA [Suspect]
     Dosage: 4 MG,
     Route: 042
     Dates: start: 200606, end: 20090402
  3. AREDIA [Suspect]
     Indication: METASTASES TO BONE
     Dosage: 90 MG, UNK
     Dates: end: 20010221
  4. TAXANES [Suspect]
  5. FEMARA [Concomitant]
  6. PENICILLIN V-K [Concomitant]
     Dosage: 500 MG, UNK
  7. CALCIUM [Concomitant]
  8. ZOLADEX [Concomitant]
  9. CYTOXAN [Concomitant]
  10. ADRIAMYCIN [Concomitant]
  11. RADIATION THERAPY [Concomitant]
  12. LUPRON [Concomitant]
     Dates: start: 200501
  13. LIPITOR [Concomitant]
  14. TAXOTERE [Concomitant]
  15. PAXIL [Concomitant]
  16. HYDROGEN PEROXIDE MOUTH RINSE [Concomitant]
  17. CEFUROXIME AXETIL [Concomitant]
  18. METHOCARBAMOL [Concomitant]
     Dosage: 750 MG, UNK
  19. PROCHLORPERAZINE [Concomitant]
     Dosage: 10 MG, UNK
  20. SERTRALINE [Concomitant]
     Dosage: 100 MG, 1 TABLET DAILY
  21. PRILOSEC [Concomitant]
  22. FEXOFENADINE [Concomitant]
     Dosage: 180 MG, UNK
  23. TAXOL [Concomitant]
  24. ETHYOL [Concomitant]
  25. ANZEMET [Concomitant]
  26. DEXAMETHASONE [Concomitant]
  27. MAGACE [Concomitant]
  28. PEPCID [Concomitant]
  29. CLINDAMYCIN [Concomitant]
     Route: 048
  30. ZOLOFT (SERTRALINE HYDROCHLORIDE) [Concomitant]
     Route: 048
  31. ROBAXIN [Concomitant]
     Route: 048
  32. LORTAB [Concomitant]
     Route: 048
  33. ASPIRIN ^BAYER^ [Concomitant]
  34. MULTIVITAMIN ^LAPPE^ [Concomitant]
  35. FISH OIL [Concomitant]
  36. MAGNESIUM [Concomitant]
  37. TURMERIC [Concomitant]
  38. VITAMIN D [Concomitant]
  39. FOLATE SODIUM [Concomitant]
  40. ALPHA LIPOIC ACID [Concomitant]
  41. OXYCODONE [Concomitant]
  42. AMOXICILLIN [Concomitant]
  43. TRAZODONE [Concomitant]
  44. SIMVASTATIN [Concomitant]
  45. HYDROCODONE W/APAP [Concomitant]
  46. DEPO-MEDROL [Concomitant]
     Dosage: 120 MG, UNK
  47. ARIMIDEX ^ASTRAZENECA^ [Concomitant]
  48. OOPHORECTOMY [Concomitant]
  49. AROMASIN [Concomitant]
  50. AVASTIN [Concomitant]
  51. MOTRIN [Concomitant]

REACTIONS (151)
  - Death [Fatal]
  - Adnexa uteri cyst [Unknown]
  - Osteonecrosis of jaw [Unknown]
  - General physical health deterioration [Unknown]
  - Pain [Unknown]
  - Anxiety [Unknown]
  - Rib fracture [Unknown]
  - Muscle spasms [Unknown]
  - Compression fracture [Unknown]
  - Spondylolisthesis [Unknown]
  - Diverticulum [Unknown]
  - Oral disorder [Unknown]
  - Tooth loss [Unknown]
  - Injury [Unknown]
  - Iron deficiency anaemia [Unknown]
  - Retinal melanoma [Unknown]
  - Cervical dysplasia [Unknown]
  - Depression [Unknown]
  - Metastases to spine [Unknown]
  - Back pain [Unknown]
  - Osteosarcoma metastatic [Unknown]
  - Joint injury [Unknown]
  - Tendon injury [Unknown]
  - Abdominal hernia [Unknown]
  - Nocturia [Unknown]
  - Hiatus hernia [Unknown]
  - Nephrolithiasis [Unknown]
  - Intervertebral disc degeneration [Unknown]
  - Intervertebral disc protrusion [Unknown]
  - Anaemia [Unknown]
  - Hydronephrosis [Not Recovered/Not Resolved]
  - Hydroureter [Not Recovered/Not Resolved]
  - Calculus ureteric [Unknown]
  - Pulmonary mass [Recovering/Resolving]
  - Pleural effusion [Not Recovered/Not Resolved]
  - Pericardial effusion [Unknown]
  - Metastases to liver [Recovering/Resolving]
  - Atelectasis [Recovering/Resolving]
  - Deep vein thrombosis [Unknown]
  - Sinusitis [Unknown]
  - Bronchitis [Unknown]
  - Sexually transmitted disease [Unknown]
  - Peptic ulcer [Unknown]
  - Cataract [Unknown]
  - Thyroid cyst [Unknown]
  - Retinal pigment epitheliopathy [Unknown]
  - Dry eye [Unknown]
  - Myopia [Unknown]
  - Conjunctivitis [Unknown]
  - Headache [Unknown]
  - Cardiac murmur [Unknown]
  - Biliary dyskinesia [Unknown]
  - Nausea [Recovered/Resolved]
  - Vomiting [Recovered/Resolved]
  - Diarrhoea [Recovered/Resolved]
  - Renal cyst [Unknown]
  - Hypoaesthesia [Unknown]
  - Osteopenia [Unknown]
  - Neuropathy peripheral [Unknown]
  - Fatigue [Recovering/Resolving]
  - Upper-airway cough syndrome [Unknown]
  - Arthralgia [Unknown]
  - Bone pain [Unknown]
  - Vitreous floaters [Unknown]
  - Photophobia [Unknown]
  - Asthenia [Unknown]
  - Weight decreased [Unknown]
  - Neoplasm skin [Unknown]
  - Decreased appetite [Unknown]
  - Sinus congestion [Unknown]
  - Oral pain [Unknown]
  - Dyspepsia [Unknown]
  - Night sweats [Unknown]
  - Hot flush [Unknown]
  - Musculoskeletal pain [Unknown]
  - Mood altered [Unknown]
  - Mastoid disorder [Unknown]
  - Mitral valve incompetence [Unknown]
  - Tricuspid valve incompetence [Unknown]
  - Pulmonary valve incompetence [Unknown]
  - Pancreatitis [Unknown]
  - Hypertension [Unknown]
  - Femur fracture [Unknown]
  - Orthostatic hypotension [Unknown]
  - Dehydration [Unknown]
  - Blood cholesterol increased [Unknown]
  - Fall [Unknown]
  - Osteosclerosis [Unknown]
  - Hyperlipidaemia [Unknown]
  - Ear pain [Unknown]
  - Rhinitis [Unknown]
  - Eustachian tube dysfunction [Unknown]
  - Incisional hernia [Unknown]
  - Spinal osteoarthritis [Unknown]
  - Hip fracture [Unknown]
  - Initial insomnia [Unknown]
  - Abdominal discomfort [Unknown]
  - Necrosis [Unknown]
  - Palmar-plantar erythrodysaesthesia syndrome [Unknown]
  - Tenderness [Unknown]
  - Dry skin [Unknown]
  - Plantar erythema [Unknown]
  - Skin exfoliation [Unknown]
  - Ecchymosis [Unknown]
  - Laceration [Unknown]
  - Pain in extremity [Unknown]
  - Lacrimation increased [Unknown]
  - Spinal pain [Unknown]
  - Skin fissures [Unknown]
  - Lymphadenopathy [Unknown]
  - Metastases to bone [Unknown]
  - Malignant neoplasm progression [Unknown]
  - Osteolysis [Unknown]
  - Pneumonia [Unknown]
  - Scoliosis [Unknown]
  - Venous stenosis [Unknown]
  - Aortic arteriosclerosis [Unknown]
  - Aortic calcification [Unknown]
  - Pain in jaw [Unknown]
  - Tooth abscess [Unknown]
  - Cellulitis [Unknown]
  - Device related infection [Unknown]
  - Respiratory failure [Unknown]
  - Lung consolidation [Unknown]
  - Organising pneumonia [Unknown]
  - Hypoxia [Unknown]
  - Dyspnoea [Unknown]
  - Vaginal infection [Unknown]
  - Sinus bradycardia [Unknown]
  - Osteoarthritis [Unknown]
  - Abdominal distension [Unknown]
  - Urinary incontinence [Unknown]
  - Oedema peripheral [Unknown]
  - Memory impairment [Unknown]
  - Neuralgia [Unknown]
  - Bronchospasm [Unknown]
  - Microcytic anaemia [Unknown]
  - Hypercoagulation [Unknown]
  - Pruritus [Unknown]
  - Gait deviation [Unknown]
  - Erythema [Unknown]
  - Sleep disorder [Unknown]
  - Cough [Unknown]
  - Dizziness [Unknown]
  - Metastases to lymph nodes [Unknown]
  - Metastases to central nervous system [Unknown]
  - Lymphoedema [Unknown]
  - Skin ulcer [Unknown]
  - Fluid intake reduced [Unknown]
  - Cognitive disorder [Unknown]
  - Blister [Unknown]
